FAERS Safety Report 4777822-0 (Version None)
Quarter: 2005Q3

REPORT INFORMATION
  Report Type: 
  Country: None (occurrence: None)
  Receive Date: 20050922
  Receipt Date: 20050906
  Transmission Date: 20060218
  Serious: Yes (Hospitalization, Other)
  Sender: FDA-Public Use
  Company Number: US-2005-015754

PATIENT
  Age: 58 Year
  Sex: Female
  Weight: 145 kg

DRUGS (3)
  1. BETASERON [Suspect]
     Indication: RELAPSING-REMITTING MULTIPLE SCLEROSIS
     Dosage: 8 MIU, EVERY 2D, SUBCUTANEOUS
     Route: 058
     Dates: start: 19981201
  2. ZOLOFT [Concomitant]
  3. ASPIRIN [Concomitant]

REACTIONS (7)
  - ANTINUCLEAR ANTIBODY POSITIVE [None]
  - ASTHENIA [None]
  - CHEST X-RAY ABNORMAL [None]
  - DYSPNOEA [None]
  - FATIGUE [None]
  - LYMPHADENOPATHY [None]
  - NEOPLASM MALIGNANT [None]
